FAERS Safety Report 13447969 (Version 2)
Quarter: 2017Q2

REPORT INFORMATION
  Report Type: Spontaneous
  Country: SE (occurrence: SE)
  Receive Date: 20170417
  Receipt Date: 20170426
  Transmission Date: 20170830
  Serious: Yes (Other)
  Sender: FDA-Public Use
  Company Number: SE-PFIZER INC-2017161762

PATIENT
  Age: 19 Year
  Sex: Female

DRUGS (6)
  1. METHYLPREDNISOLONE SODIUM SUCCINATE. [Suspect]
     Active Substance: METHYLPREDNISOLONE SODIUM SUCCINATE
     Indication: VASCULITIS
     Dosage: 500 MG, DAILY X 3, PULSES
     Route: 042
     Dates: start: 201406
  2. PREDNISOLONE. [Suspect]
     Active Substance: PREDNISOLONE
     Indication: NEPHRITIS
  3. METHYLPREDNISOLONE SODIUM SUCCINATE. [Suspect]
     Active Substance: METHYLPREDNISOLONE SODIUM SUCCINATE
     Indication: NEPHRITIS
  4. RITUXIMAB [Concomitant]
     Active Substance: RITUXIMAB
     Indication: VASCULITIS
     Dosage: 280 MG, 1X/DAY
  5. PREDNISOLONE. [Suspect]
     Active Substance: PREDNISOLONE
     Indication: VASCULITIS
     Dosage: 60 MG, DAILY (0.45 MG/KG/DAY)
     Route: 048
     Dates: start: 201406
  6. RITUXIMAB [Concomitant]
     Active Substance: RITUXIMAB
     Indication: NEPHRITIS

REACTIONS (3)
  - Obesity [Unknown]
  - Condition aggravated [Unknown]
  - Nephrotic syndrome [Unknown]
